FAERS Safety Report 6284098-4 (Version None)
Quarter: 2009Q3

REPORT INFORMATION
  Report Type: 
  Country: None (occurrence: None)
  Receive Date: 20090723
  Receipt Date: 20090713
  Transmission Date: 20100115
  Serious: Yes (Other)
  Sender: FDA-Public Use
  Company Number: ALL1-2009-01912

PATIENT
  Sex: Male

DRUGS (1)
  1. DAYTRANA [Suspect]
     Indication: DRUG USE FOR UNKNOWN INDICATION
     Dosage: 30 MG,  1X/DAY:QD, TRANSDERMAL
     Route: 062
     Dates: start: 20090101

REACTIONS (2)
  - HEADACHE [None]
  - VISUAL FIELD DEFECT [None]
